FAERS Safety Report 11036926 (Version 1)
Quarter: 2015Q2

REPORT INFORMATION
  Report Type: Spontaneous
  Country: US (occurrence: US)
  Receive Date: 20150416
  Receipt Date: 20150416
  Transmission Date: 20150821
  Serious: No
  Sender: FDA-Public Use
  Company Number: US-009507513-1504USA002683

PATIENT

DRUGS (2)
  1. ALLEGRA [Concomitant]
     Active Substance: FEXOFENADINE HYDROCHLORIDE
     Dosage: UNK
  2. SINGULAIR [Suspect]
     Active Substance: MONTELUKAST SODIUM
     Indication: OCULAR HYPERAEMIA
     Dosage: UNK
     Route: 048

REACTIONS (1)
  - Ocular hyperaemia [Not Recovered/Not Resolved]
